FAERS Safety Report 5830001-8 (Version None)
Quarter: 2008Q3

REPORT INFORMATION
  Report Type: 
  Country: None (occurrence: None)
  Receive Date: 20080801
  Receipt Date: 20080724
  Transmission Date: 20090109
  Serious: No
  Sender: FDA-Public Use
  Company Number: FR-PFIZER INC-2007087190

PATIENT
  Sex: Male

DRUGS (8)
  1. TRIFLUCAN [Suspect]
     Route: 048
  2. ANTINEOPLASTIC AGENTS [Suspect]
     Indication: ACUTE LYMPHOCYTIC LEUKAEMIA
     Route: 042
     Dates: start: 20070608, end: 20070612
  3. CIFLOX [Suspect]
     Route: 048
     Dates: start: 20070606, end: 20070612
  4. AMIKLIN [Suspect]
     Dates: start: 20070609, end: 20070614
  5. ZELITREX [Suspect]
     Dosage: TEXT: 2 DF
     Route: 048
  6. FORTUM [Suspect]
     Route: 042
  7. PLITICAN [Concomitant]
  8. DOLIPRANE [Concomitant]

REACTIONS (1)
  - NO ADVERSE EVENT [None]
